FAERS Safety Report 15220952 (Version 1)
Quarter: 2018Q3

REPORT INFORMATION
  Report Type: Spontaneous
  Country: US (occurrence: US)
  Receive Date: 20180703
  Receipt Date: 20180703
  Transmission Date: 20181010
  Serious: Yes (Hospitalization)
  Sender: FDA-Public Use
  Company Number: None

PATIENT
  Age: 50 Year
  Sex: Male
  Weight: 87.9 kg

DRUGS (4)
  1. CAMPTOSAR [Suspect]
     Active Substance: IRINOTECAN HYDROCHLORIDE
     Dates: end: 20180619
  2. LEUCOVORIN CALCIUM. [Suspect]
     Active Substance: LEUCOVORIN CALCIUM
     Dates: end: 20180619
  3. ELOXATIN [Suspect]
     Active Substance: OXALIPLATIN
     Dates: end: 20180619
  4. 5?FLUOROURACIL (5?FU) [Suspect]
     Active Substance: FLUOROURACIL
     Dates: end: 20180619

REACTIONS (9)
  - Abdominal pain [None]
  - Drug effect incomplete [None]
  - Obstruction [None]
  - Vomiting [None]
  - Phlebolith [None]
  - Diarrhoea [None]
  - Nausea [None]
  - Dehydration [None]
  - Gastrointestinal toxicity [None]

NARRATIVE: CASE EVENT DATE: 20180625
